FAERS Safety Report 8772925 (Version 3)
Quarter: 2013Q1

REPORT INFORMATION
  Report Type: Report from Study
  Country: JP (occurrence: JP)
  Receive Date: 20120907
  Receipt Date: 20130128
  Transmission Date: 20140127
  Serious: Yes (Death, Other)
  Sender: FDA-Public Use
  Company Number: PHHY2012JP077418

PATIENT
  Age: 57 Year
  Sex: Male
  Weight: 76 kg

DRUGS (19)
  1. ALISKIREN [Suspect]
     Dosage: 150 MG, QD
     Route: 048
     Dates: start: 20100715, end: 20110928
  2. DIOVAN [Concomitant]
     Indication: HYPERTENSION
     Dosage: 80 MG, UNK
     Route: 048
     Dates: start: 20100611
  3. DIOVAN [Concomitant]
     Dosage: 120 MG, UNK
     Route: 048
  4. COROHERSER [Concomitant]
     Indication: HYPERTENSION
     Dosage: 100 MG, UNK
     Route: 048
     Dates: start: 20100611, end: 20100710
  5. ATELEC [Concomitant]
     Indication: HYPERTENSION
     Dosage: 10 MG, UNK
     Route: 048
     Dates: start: 20100611
  6. BENIDIPINE HYDROCHLORIDE [Concomitant]
     Indication: HYPERTENSION
     Dosage: 8 MG, UNK
     Route: 048
     Dates: start: 20100611
  7. FUROSEMIDE [Concomitant]
     Indication: HYPERTENSION
     Dosage: 40 MG, UNK
     Route: 048
     Dates: start: 20100611, end: 20110422
  8. RIBALL [Concomitant]
     Dosage: 100 MG, UNK
     Route: 048
     Dates: start: 20100611
  9. LIVALO [Concomitant]
     Dosage: 1 MG, UNK
     Route: 048
     Dates: start: 20100611
  10. CALCIUM CARBONATE [Concomitant]
     Dosage: 1 G, UNK
     Route: 048
     Dates: start: 20100725
  11. CALCIUM CARBONATE [Concomitant]
     Dosage: 1.5 G, UNK
     Route: 048
  12. CALCIUM CARBONATE [Concomitant]
     Dosage: 2 G, UNK
     Route: 048
  13. CALCIUM CARBONATE [Concomitant]
     Dosage: 3 G, UNK
     Route: 048
  14. ONEALFA [Concomitant]
     Dosage: 0.25 UG, UNK
     Route: 048
     Dates: start: 20100627
  15. ONEALFA [Concomitant]
     Dosage: 0.5 UG, UNK
     Route: 048
  16. ONEALFA [Concomitant]
     Dosage: 0.75 UG, UNK
     Route: 048
     Dates: end: 20110617
  17. FERROMIA [Concomitant]
     Indication: IRON DEFICIENCY ANAEMIA
     Dosage: 50 MG, UNK
     Route: 048
     Dates: start: 20100807
  18. WARKMIN [Concomitant]
     Dosage: 0.1 UG, UNK
     Route: 048
     Dates: start: 20110618
  19. DIGOXIN [Concomitant]
     Dosage: 0.062 MG, UNK
     Route: 048
     Dates: start: 20110227

REACTIONS (9)
  - Myocarditis [Fatal]
  - Pulmonary congestion [Fatal]
  - Pyrexia [Fatal]
  - Dyspnoea [Fatal]
  - Blood pressure fluctuation [Unknown]
  - Blood urea increased [Unknown]
  - Blood creatinine increased [Unknown]
  - Tachycardia [Unknown]
  - Anaemia [Not Recovered/Not Resolved]
